FAERS Safety Report 19372195 (Version 1)
Quarter: 2021Q2

REPORT INFORMATION
  Report Type: Spontaneous
  Country: US (occurrence: US)
  Receive Date: 20210603
  Receipt Date: 20210603
  Transmission Date: 20210717
  Serious: Yes (Hospitalization)
  Sender: FDA-Public Use
  Company Number: None

PATIENT
  Age: 68 Year
  Sex: Female

DRUGS (1)
  1. MERCAPTOPURINE TAB [Suspect]
     Active Substance: MERCAPTOPURINE
     Indication: COLORECTAL CANCER
     Route: 048
     Dates: start: 202003

REACTIONS (1)
  - Brain neoplasm benign [None]

NARRATIVE: CASE EVENT DATE: 20210505
